FAERS Safety Report 15891637 (Version 1)
Quarter: 2019Q1

REPORT INFORMATION
  Report Type: Spontaneous
  Country: US (occurrence: US)
  Receive Date: 20190130
  Receipt Date: 20190130
  Transmission Date: 20190417
  Serious: Yes (Other)
  Sender: FDA-Public Use
  Company Number: US-PFIZER INC-2019035678

PATIENT
  Age: 58 Year
  Sex: Male
  Weight: 88 kg

DRUGS (1)
  1. LYRICA [Suspect]
     Active Substance: PREGABALIN
     Indication: DIABETIC NEUROPATHY
     Dosage: 150 MG, 2X/DAY
     Route: 048

REACTIONS (6)
  - Glaucoma [Unknown]
  - Cardiac disorder [Unknown]
  - Peripheral swelling [Unknown]
  - Hypoacusis [Unknown]
  - Blindness unilateral [Unknown]
  - Limb discomfort [Unknown]

NARRATIVE: CASE EVENT DATE: 1997
